FAERS Safety Report 16119418 (Version 2)
Quarter: 2021Q3

REPORT INFORMATION
  Report Type: Spontaneous
  Country: IN (occurrence: IN)
  Receive Date: 20190326
  Receipt Date: 20210819
  Transmission Date: 20211014
  Serious: Yes (Death, Other)
  Sender: FDA-Public Use
  Company Number: IN-PFIZER INC-2019120273

PATIENT
  Age: 65 Year
  Sex: Female

DRUGS (2)
  1. PALBACE [Suspect]
     Active Substance: PALBOCICLIB
     Dosage: 125 MG, ONCE A DAY
     Route: 048
     Dates: start: 20180411
  2. PALBACE [Suspect]
     Active Substance: PALBOCICLIB
     Indication: BREAST CANCER METASTATIC
     Dosage: 125 MG, ONCE A DAY
     Route: 048
     Dates: start: 20180510, end: 20191205

REACTIONS (10)
  - Neoplasm progression [Fatal]
  - Lymphocyte count decreased [Unknown]
  - Liver disorder [Unknown]
  - Neutrophil count decreased [Unknown]
  - Weight decreased [Unknown]
  - Hypertension [Unknown]
  - Vomiting [Unknown]
  - White blood cell count decreased [Unknown]
  - Monocyte count decreased [Unknown]
  - Asthenia [Unknown]

NARRATIVE: CASE EVENT DATE: 20190225
